FAERS Safety Report 17926821 (Version 1)
Quarter: 2020Q2

REPORT INFORMATION
  Report Type: Spontaneous
  Country: US (occurrence: US)
  Receive Date: 20200623
  Receipt Date: 20200623
  Transmission Date: 20200714
  Serious: No
  Sender: FDA-Public Use
  Company Number: US-ITALFARMACO SPA-2086535

PATIENT
  Age: 63 Year
  Sex: Female

DRUGS (12)
  1. GLUTATHIONE [Concomitant]
     Active Substance: GLUTATHIONE
  2. GARLIC OIL [Concomitant]
     Active Substance: GARLIC OIL
  3. POTASSIUM CHLORIDE. [Concomitant]
     Active Substance: POTASSIUM CHLORIDE
  4. OMEGA 3 [Concomitant]
     Active Substance: OMEGA-3 FATTY ACIDS
  5. COENZYME Q10 [Concomitant]
     Active Substance: UBIDECARENONE
  6. GINSENG [Concomitant]
     Active Substance: ASIAN GINSENG
  7. RED YEAST RICE EXTRACT [Concomitant]
  8. TIGLUTIK [Suspect]
     Active Substance: RILUZOLE
     Indication: AMYOTROPHIC LATERAL SCLEROSIS
     Route: 048
  9. MULTIVITAMIN [Concomitant]
     Active Substance: VITAMINS
  10. PROBIOTIC [Concomitant]
     Active Substance: PROBIOTICS NOS
  11. VITAMIN C [Concomitant]
     Active Substance: ASCORBIC ACID
  12. CREATINE [Concomitant]
     Active Substance: CREATINE

REACTIONS (2)
  - Hypoaesthesia oral [Not Recovered/Not Resolved]
  - Paraesthesia oral [None]
